FAERS Safety Report 9215630 (Version 3)
Quarter: 2013Q2

REPORT INFORMATION
  Report Type: Spontaneous
  Country: US (occurrence: US)
  Receive Date: 20130408
  Receipt Date: 20130524
  Transmission Date: 20140414
  Serious: Yes (Other)
  Sender: FDA-Public Use
  Company Number: US-009507513-1304USA000665

PATIENT
  Age: 39 Year
  Sex: Male

DRUGS (2)
  1. REBETOL [Suspect]
     Indication: HEPATITIS C
  2. PEGINTRON [Suspect]
     Indication: HEPATITIS C

REACTIONS (3)
  - Liver transplant [Recovered/Resolved]
  - Drug ineffective [Unknown]
  - Hepatic cirrhosis [Recovered/Resolved]
